FAERS Safety Report 7217240-9 (Version None)
Quarter: 2010Q4

REPORT INFORMATION
  Report Type: 
  Country: None (occurrence: None)
  Receive Date: 20101230
  Receipt Date: 20101213
  Transmission Date: 20110411
  Serious: Yes (Hospitalization)
  Sender: FDA-Public Use
  Company Number: AUR-APL-2010-03139

PATIENT
  Age: 58 Year
  Sex: Male

DRUGS (7)
  1. CITALOPRAM [Suspect]
     Indication: DEPRESSION
     Dosage: 20MG - DAILY - ORAL
     Route: 048
  2. ASPIRIN [Suspect]
     Indication: CEREBROVASCULAR ACCIDENT PROPHYLAXIS
     Dosage: 75MG - DAILY - ORAL
     Route: 048
  3. CHLORHEXIDINE GLUCONATE [Concomitant]
  4. LANSOPRAZOLE [Concomitant]
  5. PARACETAMOL [Concomitant]
  6. SIMVASTATIN [Concomitant]
  7. SODIUM FEREDETATE [Concomitant]

REACTIONS (3)
  - HAEMOGLOBIN DECREASED [None]
  - HAEMORRHOIDS [None]
  - RECTAL HAEMORRHAGE [None]
